FAERS Safety Report 23940622 (Version 1)
Quarter: 2024Q2

REPORT INFORMATION
  Report Type: Spontaneous
  Country: US (occurrence: US)
  Receive Date: 20240605
  Receipt Date: 20240605
  Transmission Date: 20240716
  Serious: Yes (Other)
  Sender: FDA-Public Use
  Company Number: None

PATIENT
  Age: 66 Year
  Sex: Female

DRUGS (8)
  1. VANCOMYCIN [Suspect]
     Active Substance: VANCOMYCIN
     Indication: Wound
     Dosage: 1 GRAM, QD
     Route: 065
  2. VANCOMYCIN [Suspect]
     Active Substance: VANCOMYCIN
     Indication: Empyema
  3. VANCOMYCIN [Suspect]
     Active Substance: VANCOMYCIN
     Indication: Pneumonia
  4. VANCOMYCIN [Suspect]
     Active Substance: VANCOMYCIN
     Indication: Enterococcal infection
  5. AMPICILLIN [Concomitant]
     Active Substance: AMPICILLIN
     Indication: Wound
     Dosage: UNK
     Route: 065
  6. AMPICILLIN [Concomitant]
     Active Substance: AMPICILLIN
     Indication: Empyema
  7. AMPICILLIN [Concomitant]
     Active Substance: AMPICILLIN
     Indication: Pneumonia
  8. AMPICILLIN [Concomitant]
     Active Substance: AMPICILLIN
     Indication: Enterococcal infection

REACTIONS (2)
  - Acute kidney injury [Recovering/Resolving]
  - Drug level increased [Unknown]
